FAERS Safety Report 13140215 (Version 1)
Quarter: 2017Q1

REPORT INFORMATION
  Report Type: Spontaneous
  Country: US (occurrence: US)
  Receive Date: 20170123
  Receipt Date: 20170123
  Transmission Date: 20170428
  Serious: Yes (Other)
  Sender: FDA-Public Use
  Company Number: US-ELI_LILLY_AND_COMPANY-US201608000106

PATIENT
  Age: 50 Year

DRUGS (1)
  1. CYMBALTA [Suspect]
     Active Substance: DULOXETINE HYDROCHLORIDE
     Indication: PRODUCT USED FOR UNKNOWN INDICATION
     Dosage: 60 MG, QD
     Route: 048
     Dates: start: 20110303

REACTIONS (5)
  - Irritability [Unknown]
  - Suicidal ideation [Recovered/Resolved]
  - Diarrhoea [Unknown]
  - Drug withdrawal syndrome [Unknown]
  - Dysphoria [Unknown]

NARRATIVE: CASE EVENT DATE: 20110502
